FAERS Safety Report 6135929-X (Version None)
Quarter: 2009Q1

REPORT INFORMATION
  Report Type: 
  Country: None (occurrence: None)
  Receive Date: 20090327
  Receipt Date: 20090316
  Transmission Date: 20090719
  Serious: Yes (Other)
  Sender: FDA-Public Use
  Company Number: ES-JNJFOC-20090304662

PATIENT
  Sex: Female

DRUGS (3)
  1. REMICADE [Suspect]
     Route: 042
  2. REMICADE [Suspect]
     Indication: RHEUMATOID ARTHRITIS
     Route: 042
  3. GLUCOCORTICOIDS [Concomitant]

REACTIONS (3)
  - ANGINA PECTORIS [None]
  - MALIGNANT HYPERTENSIVE HEART DISEASE [None]
  - SUPRAVENTRICULAR TACHYCARDIA [None]
